FAERS Safety Report 8240958-6 (Version None)
Quarter: 2012Q1

REPORT INFORMATION
  Report Type: 
  Country: None (occurrence: None)
  Receive Date: 20120328
  Receipt Date: 20120320
  Transmission Date: 20120608
  Serious: Yes (Life-Threatening)
  Sender: FDA-Public Use
  Company Number: NL-TEVA-327054ISR

PATIENT
  Sex: Female
  Weight: 47 kg

DRUGS (18)
  1. AZITHROMYCIN [Suspect]
     Indication: ANTIBIOTIC PROPHYLAXIS
     Dates: start: 20101101
  2. NOVORAPID FLEXPEN INJVLST 100E/ML WWSP 3ML [Concomitant]
     Dates: start: 20120202, end: 20120208
  3. CALCICHEW KAUWTABLET 500MG [Concomitant]
     Dosage: 1000 MILLIGRAM;
     Dates: start: 20120202, end: 20120208
  4. FORADIL AEROSOL [Concomitant]
     Dosage: 12MCG/DO SPBS 100DOSES+INH
     Dates: start: 20120131, end: 20120208
  5. PANTOPRAZOL PCH TABLET MSR40MG [Concomitant]
     Dosage: 40 MILLIGRAM;
     Dates: start: 20120202, end: 20120208
  6. FERRO-GRADUMET MGA 105MG FE [Concomitant]
     Dates: start: 20120202, end: 20120208
  7. ALPRAZOLAM CF TABLET 0,5MG [Concomitant]
     Dates: start: 20120202, end: 20120208
  8. AZITHROMYCIN [Suspect]
     Dates: start: 20120131, end: 20120208
  9. PREDNISOLON PCH TABLET 5MG [Concomitant]
     Dosage: 5 MILLIGRAM;
     Dates: start: 20120202, end: 20120208
  10. CODEINE TABLET 20MG [Concomitant]
     Dates: start: 20120131, end: 20120208
  11. SEROXAT TABLET FILMOMHULD [Concomitant]
     Dosage: 20 MILLIGRAM;
     Dates: start: 20120131, end: 20120208
  12. LANTUS SOLOSTAR INJ 100E/ML WWSP 3ML [Concomitant]
     Dates: start: 20120131, end: 20120208
  13. AZACTAM INJECTIEPOEDER FLAC 1000MG [Concomitant]
     Dates: start: 20120131, end: 20120208
  14. CREON FORTE CAPSULE MGA (PANCREATINE 300MG) [Concomitant]
     Dates: start: 20120131, end: 20120208
  15. PIPERACILLIN AND TAZOBACTAM [Suspect]
     Indication: INFECTIVE PULMONARY EXACERBATION OF CYSTIC FIBROSIS
     Dosage: 4 DOSAGE FORMS; 4000MG/500MG
     Dates: start: 20120131, end: 20120207
  16. URSOCHOL TABLET 450MG [Concomitant]
     Dosage: 900 MILLIGRAM;
     Dates: start: 20120131, end: 20120208
  17. NEXIUM IV INJECTIEPOEDER FLACON 40MG [Concomitant]
     Dates: start: 20120207, end: 20120208
  18. ACTONEL WEKELIJKS TABLET FILMOMHULD 35MG [Concomitant]
     Dosage: 5 MILLIGRAM;
     Dates: start: 20120131, end: 20120208

REACTIONS (1)
  - HAEMOLYTIC ANAEMIA [None]
